FAERS Safety Report 5165548-3 (Version None)
Quarter: 2006Q4

REPORT INFORMATION
  Report Type: 
  Country: None (occurrence: None)
  Receive Date: 20061206
  Receipt Date: 20061204
  Transmission Date: 20070319
  Serious: Yes (Hospitalization)
  Sender: FDA-Public Use
  Company Number: FR-MERCK-0612FRA00008

PATIENT
  Age: 72 Year
  Sex: Male

DRUGS (6)
  1. COZAAR [Suspect]
     Indication: HYPERTENSION
     Route: 048
     Dates: end: 20060523
  2. ATORVASTATIN CALCIUM [Suspect]
     Indication: HYPERCHOLESTEROLAEMIA
     Route: 048
     Dates: end: 20060523
  3. CLOPIDOGREL BISULFATE [Suspect]
     Indication: ARTERITIS
     Route: 048
     Dates: end: 20060523
  4. MOMETASONE FUROATE [Concomitant]
     Route: 065
  5. BUDESONIDE AND FORMOTEROL FUMARATE [Concomitant]
  6. EBASTINE [Concomitant]
     Route: 048

REACTIONS (1)
  - ECZEMA [None]
